FAERS Safety Report 24736415 (Version 2)
Quarter: 2024Q4

REPORT INFORMATION
  Report Type: Spontaneous
  Country: JP (occurrence: JP)
  Receive Date: 20241216
  Receipt Date: 20241223
  Transmission Date: 20250115
  Serious: Yes (Death, Other)
  Sender: ARGENX BVBA
  Company Number: JP-ARGENX-2024-ARGX-JP011353AA

PATIENT

DRUGS (6)
  1. VYVGART [Suspect]
     Active Substance: EFGARTIGIMOD ALFA-FCAB
     Indication: Immune thrombocytopenia
     Dosage: 480 MG
     Route: 042
     Dates: start: 20241128, end: 20241128
  2. FAMOTIDINE [Concomitant]
     Active Substance: FAMOTIDINE
     Indication: Product used for unknown indication
     Dosage: UNK
     Route: 065
  3. REBAMIPIDE [Concomitant]
     Active Substance: REBAMIPIDE
     Indication: Product used for unknown indication
     Dosage: UNK
     Route: 065
  4. PREDNISOLONE [Concomitant]
     Active Substance: PREDNISOLONE
     Indication: Product used for unknown indication
     Dosage: 25 MG
     Route: 065
  5. ELTROMBOPAG OLAMINE [Concomitant]
     Active Substance: ELTROMBOPAG OLAMINE
     Indication: Product used for unknown indication
     Dosage: 50 MG
     Route: 065
  6. FOSTAMATINIB [Concomitant]
     Active Substance: FOSTAMATINIB
     Indication: Product used for unknown indication
     Dosage: 300 MG
     Route: 065

REACTIONS (1)
  - Pneumonia [Fatal]

NARRATIVE: CASE EVENT DATE: 20241206
